FAERS Safety Report 12527337 (Version 3)
Quarter: 2016Q3

REPORT INFORMATION
  Report Type: Spontaneous
  Country: FR (occurrence: FR)
  Receive Date: 20160705
  Receipt Date: 20160803
  Transmission Date: 20161109
  Serious: Yes (Death, Hospitalization, Other)
  Sender: FDA-Public Use
  Company Number: FR-BAYER-2016-122795

PATIENT
  Age: 73 Year
  Sex: Female

DRUGS (1)
  1. STIVARGA [Suspect]
     Active Substance: REGORAFENIB
     Indication: COLON CANCER
     Dosage: UNK
     Dates: start: 201605, end: 201606

REACTIONS (13)
  - Pain [None]
  - Asthenia [None]
  - Vaginal haemorrhage [None]
  - Gait disturbance [None]
  - Colon cancer [Fatal]
  - Abdominal pain upper [None]
  - Abdominal distension [None]
  - Decreased appetite [None]
  - Condition aggravated [None]
  - Metastases to liver [None]
  - Weight increased [None]
  - Nausea [None]
  - Gastrointestinal toxicity [None]

NARRATIVE: CASE EVENT DATE: 201605
